FAERS Safety Report 20556271 (Version 1)
Quarter: 2022Q1

REPORT INFORMATION
  Report Type: Spontaneous
  Country: FR (occurrence: FR)
  Receive Date: 20220305
  Receipt Date: 20220305
  Transmission Date: 20220424
  Serious: Yes (Death, Other)
  Sender: FDA-Public Use
  Company Number: FR-AMGEN-FRASP2019140557

PATIENT
  Age: 33 Year
  Sex: Male

DRUGS (6)
  1. PROLIA [Suspect]
     Active Substance: DENOSUMAB
     Indication: Hypercalcaemia
     Dosage: 60 MILLIGRAM
     Route: 058
  2. CALCITRIOL [Concomitant]
     Active Substance: CALCITRIOL
  3. PAMIDRONATE [Concomitant]
     Active Substance: PAMIDRONATE DISODIUM
     Indication: Hypercalcaemia
  4. SOLU-MEDROL [Concomitant]
     Active Substance: METHYLPREDNISOLONE SODIUM SUCCINATE
  5. INFLIXIMAB [Concomitant]
     Active Substance: INFLIXIMAB
  6. ANAKINRA [Concomitant]
     Active Substance: ANAKINRA

REACTIONS (15)
  - Hypercalcaemia [Fatal]
  - Sepsis [Fatal]
  - Cachexia [Fatal]
  - Mitral valve calcification [Fatal]
  - Crystal nephropathy [Unknown]
  - Spinal fracture [Unknown]
  - Transient ischaemic attack [Unknown]
  - Renal impairment [Unknown]
  - Skin necrosis [Unknown]
  - Arteriovenous fistula thrombosis [Unknown]
  - Chronic inflammatory response syndrome [Unknown]
  - Hepatosplenomegaly [Unknown]
  - Pain [Unknown]
  - Spondylitis [Unknown]
  - Off label use [Unknown]
